FAERS Safety Report 17056995 (Version 1)
Quarter: 2019Q4

REPORT INFORMATION
  Report Type: Spontaneous
  Country: SE (occurrence: SE)
  Receive Date: 20191121
  Receipt Date: 20191121
  Transmission Date: 20200122
  Serious: Yes (Hospitalization)
  Sender: FDA-Public Use
  Company Number: SE-ROCHE-2476594

PATIENT
  Age: 30 Year
  Sex: Female

DRUGS (5)
  1. IKTORIVIL [Suspect]
     Active Substance: CLONAZEPAM
     Indication: PRODUCT USED FOR UNKNOWN INDICATION
     Dosage: ^10-15 STYCKEN^?MOST RECENT DOSE PRIOR TO AE 18/OCT/2019
     Route: 065
     Dates: start: 20191018
  2. QUETIAPINE. [Suspect]
     Active Substance: QUETIAPINE
     Indication: PRODUCT USED FOR UNKNOWN INDICATION
     Dosage: MOST RECENT DOSE PRIOR TO AE 18/OCT/2019
     Route: 065
     Dates: start: 20191018
  3. THERALEN [Suspect]
     Active Substance: TRIMEPRAZINE
     Indication: PRODUCT USED FOR UNKNOWN INDICATION
     Dosage: ^50-60 STYCKEN^?MOST RECENT DOSE PRIOR TO AE 18/OCT/2019
     Route: 065
     Dates: start: 20191018
  4. PARACETAMOL [Suspect]
     Active Substance: ACETAMINOPHEN
     Indication: PRODUCT USED FOR UNKNOWN INDICATION
     Dosage: MOST RECENT DOSE PRIOR TO AE 18/OCT/2019
     Route: 065
     Dates: start: 20191018
  5. IMOVANE [Suspect]
     Active Substance: ZOPICLONE
     Indication: PRODUCT USED FOR UNKNOWN INDICATION
     Dosage: MOST RECENT DOSE PRIOR TO AE 18/OCT/2019
     Route: 065
     Dates: start: 20191018

REACTIONS (4)
  - Suicidal ideation [Unknown]
  - Agitation [Unknown]
  - Intentional overdose [Unknown]
  - Toxicity to various agents [Unknown]

NARRATIVE: CASE EVENT DATE: 20191018
